FAERS Safety Report 8968204 (Version 1)
Quarter: 2012Q4

REPORT INFORMATION
  Report Type: 
  Country: IL (occurrence: IL)
  Receive Date: 20121217
  Receipt Date: 20121217
  Transmission Date: 20130627
  Serious: Yes (Hospitalization)
  Sender: FDA-Public Use
  Company Number: PHHY2012IL011411

PATIENT
  Age: 89 Year
  Sex: Male

DRUGS (2)
  1. SANDOSTATIN LAR [Suspect]
     Indication: CARCINOID TUMOUR
     Dosage: 30 mg, every 4 weeks
     Dates: start: 20071011
  2. SANDOSTATIN LAR [Suspect]
     Dosage: 30 mg, every 4 weeks
     Dates: start: 20121031

REACTIONS (5)
  - Gait disturbance [Unknown]
  - Pyrexia [Unknown]
  - Pneumonia [Unknown]
  - Hypertension [Unknown]
  - Nausea [Unknown]
